FAERS Safety Report 8877477 (Version 2)
Quarter: 2012Q4

REPORT INFORMATION
  Report Type: 
  Country: JP (occurrence: JP)
  Receive Date: 20121024
  Receipt Date: 20121112
  Transmission Date: 20130627
  Serious: Yes (Hospitalization)
  Sender: FDA-Public Use
  Company Number: JP-VERTEX PHARMACEUTICAL INC.-2012-023369

PATIENT
  Age: 63 Year
  Sex: Male

DRUGS (4)
  1. TELAVIC [Suspect]
     Indication: HEPATITIS C
     Dosage: 2250 mg, UNK
     Route: 048
     Dates: start: 20121011, end: 20121017
  2. REBETOL [Suspect]
     Indication: HEPATITIS C
     Dosage: 600 mg, UNK
     Route: 048
     Dates: start: 20121011
  3. PEGINTRON                          /01543001/ [Suspect]
     Indication: HEPATITIS C
     Dosage: 1.5 ?g/kg/week
     Route: 058
     Dates: start: 20121011
  4. TALION                             /01587402/ [Concomitant]
     Dosage: 20 mg, UNK
     Route: 048
     Dates: start: 20121011, end: 20121017

REACTIONS (1)
  - Rash [Recovered/Resolved]
